FAERS Safety Report 16689459 (Version 4)
Quarter: 2019Q4

REPORT INFORMATION
  Report Type: Spontaneous
  Country: US (occurrence: US)
  Receive Date: 20190809
  Receipt Date: 20191003
  Transmission Date: 20200122
  Serious: No
  Sender: FDA-Public Use
  Company Number: US-PFIZER INC-2019342963

PATIENT
  Age: 72 Year
  Sex: Female
  Weight: 88 kg

DRUGS (7)
  1. CLINDAMYCIN HCL [Suspect]
     Active Substance: CLINDAMYCIN HYDROCHLORIDE
     Indication: RESPIRATORY TRACT INFECTION
     Dosage: 300 MG, 3X/DAY
     Route: 048
     Dates: start: 20180531, end: 20180611
  2. CLINDAMYCIN HCL [Suspect]
     Active Substance: CLINDAMYCIN HYDROCHLORIDE
     Indication: VIRAL INFECTION
  3. CLINDAMYCIN HCL [Suspect]
     Active Substance: CLINDAMYCIN HYDROCHLORIDE
     Indication: BACTERIAL INFECTION
  4. AZITHROMYCIN ANHYDROUS. [Concomitant]
     Active Substance: AZITHROMYCIN ANHYDROUS
     Indication: VIRAL INFECTION
     Dosage: 250 MG, 2X/DAY
     Dates: start: 20190416
  5. PREDNISONE. [Concomitant]
     Active Substance: PREDNISONE
     Dosage: 20 MG, UNK
     Dates: start: 20180531
  6. FLUTICASONE. [Concomitant]
     Active Substance: FLUTICASONE
     Indication: HYPERSENSITIVITY
     Dosage: 50 UG, AS NEEDED (1 SPRAY IN EACH NOSTRILS)
     Dates: start: 20190108
  7. WARFARIN [Concomitant]
     Active Substance: WARFARIN
     Indication: HEART VALVE INCOMPETENCE
     Dosage: UNK

REACTIONS (6)
  - Abdominal pain upper [Recovered/Resolved]
  - Dysphonia [Recovered/Resolved]
  - Nausea [Recovered/Resolved]
  - Headache [Recovered/Resolved]
  - Drug ineffective [Recovered/Resolved]
  - Diarrhoea [Recovered/Resolved]

NARRATIVE: CASE EVENT DATE: 201805
